FAERS Safety Report 20178191 (Version 1)
Quarter: 2021Q4

REPORT INFORMATION
  Report Type: Spontaneous
  Country: DE (occurrence: DE)
  Receive Date: 20211213
  Receipt Date: 20211213
  Transmission Date: 20220304
  Serious: Yes (Hospitalization, Other)
  Sender: FDA-Public Use
  Company Number: DE-ANIPHARMA-2021-DE-000273

PATIENT
  Sex: Female

DRUGS (2)
  1. ANASTROZOLE [Suspect]
     Active Substance: ANASTROZOLE
     Indication: Breast cancer
     Route: 065
  2. DENOSUMAB [Concomitant]
     Active Substance: DENOSUMAB
     Dosage: 2 DOSAGE FORM EVERY 6 MONTH
     Route: 065

REACTIONS (2)
  - Osteonecrosis [Not Recovered/Not Resolved]
  - Osteoarthritis [Not Recovered/Not Resolved]
